FAERS Safety Report 25681880 (Version 2)
Quarter: 2025Q3

REPORT INFORMATION
  Report Type: Report from Study
  Country: US (occurrence: US)
  Receive Date: 20250814
  Receipt Date: 20250821
  Transmission Date: 20251020
  Serious: No
  Sender: ABBVIE
  Company Number: US-ABBVIE-6409442

PATIENT
  Age: 60 Year
  Sex: Male

DRUGS (2)
  1. VYALEV [Suspect]
     Active Substance: FOSCARBIDOPA\FOSLEVODOPA
     Indication: Parkinson^s disease
     Route: 058
     Dates: start: 20250805
  2. VYALEV [Suspect]
     Active Substance: FOSCARBIDOPA\FOSLEVODOPA
     Route: 058
     Dates: start: 20250807, end: 20250807

REACTIONS (5)
  - Device difficult to use [Recovering/Resolving]
  - Stress [Unknown]
  - Blood glucose increased [Unknown]
  - On and off phenomenon [Recovering/Resolving]
  - Device power source issue [Unknown]

NARRATIVE: CASE EVENT DATE: 20250801
